FAERS Safety Report 7045065-6 (Version None)
Quarter: 2010Q4

REPORT INFORMATION
  Report Type: 
  Country: None (occurrence: None)
  Receive Date: 20101014
  Receipt Date: 20101002
  Transmission Date: 20110411
  Serious: Yes (Hospitalization)
  Sender: FDA-Public Use
  Company Number: CO-GENZYME-CLOF-1001252

PATIENT
  Age: 2 Year
  Sex: Male
  Weight: 10.8 kg

DRUGS (2)
  1. CLOLAR [Suspect]
     Indication: ACUTE LYMPHOCYTIC LEUKAEMIA
     Dosage: 52 MG/M2, QDX5
     Route: 042
     Dates: start: 20100922, end: 20100927
  2. METHYLPREDNISOLONE [Concomitant]
     Indication: PROPHYLAXIS
     Dosage: 2 MG/KG, UNK
     Route: 065
     Dates: start: 20100922, end: 20100927

REACTIONS (2)
  - PYREXIA [None]
  - RASH PUSTULAR [None]
